FAERS Safety Report 9602827 (Version 1)
Quarter: 2013Q4

REPORT INFORMATION
  Report Type: Spontaneous
  Country: HU (occurrence: HU)
  Receive Date: 20131007
  Receipt Date: 20131007
  Transmission Date: 20140711
  Serious: Yes (Hospitalization)
  Sender: FDA-Public Use
  Company Number: HU-B.I. PHARMACEUTICALS,INC./RIDGEFIELD-2013-BI-31190HU

PATIENT
  Age: 81 Year
  Sex: Female
  Weight: 54.3 kg

DRUGS (16)
  1. PRADAXA [Suspect]
     Indication: ATRIAL FIBRILLATION
     Dosage: 220 MG
     Route: 048
     Dates: start: 20130831, end: 20130913
  2. CLOPIDOGREL [Suspect]
     Indication: PROPHYLAXIS
     Dosage: 75 MG
     Route: 048
  3. WARFARIN [Suspect]
     Indication: ATRIAL FIBRILLATION
     Dosage: 1 MG
     Route: 048
     Dates: start: 20130904, end: 20130913
  4. LOW MOLECULAR WEIGHT HEPARIN (LMWH) [Concomitant]
     Indication: PROPHYLAXIS
     Dates: end: 20130930
  5. METFORMIN [Concomitant]
     Indication: TYPE 2 DIABETES MELLITUS
     Dates: end: 20130904
  6. SOTALEX [Concomitant]
     Indication: ATRIAL FIBRILLATION
     Dates: end: 20130904
  7. FUROSEMIDE [Concomitant]
     Indication: OEDEMA
     Route: 048
  8. ADEXOR MR [Concomitant]
     Indication: ANGINA PECTORIS
     Dosage: 70 MG
     Route: 048
  9. DIGIMERCK MINOR [Concomitant]
     Indication: ATRIAL FIBRILLATION
     Dosage: 0.07 MG
     Route: 048
  10. EUTHYROX [Concomitant]
     Indication: HYPOTHYROIDISM
     Route: 048
  11. HUMULIN N AND R [Concomitant]
     Indication: DIABETES MELLITUS
     Dosage: 18 U
     Route: 058
     Dates: start: 201309
  12. KALIUM-R [Concomitant]
     Indication: HYPOKALAEMIA
     Dosage: 3000 MG
     Route: 048
  13. MILGAMMA [Concomitant]
     Indication: POLYNEUROPATHY
     Dosage: FORMULATION: COATED TABLET. DOSE PER APPLICATION: 1 DOSAGE FORM. DAILY DOSE: 3 DOSAGE FORM IN ONE DA
     Route: 048
  14. NEBILET [Concomitant]
     Indication: HYPERTENSION
     Dosage: 2.5 MG
     Route: 048
  15. NITRODERM TTS [Concomitant]
     Indication: CARDIAC FAILURE CONGESTIVE
     Dosage: FORM: TRANSDERMAL PATCH. DOSE PER APPLICATION: 1 DF DAILY DOSE: 1DF
     Route: 062
  16. NORTIVAN HCT [Concomitant]
     Indication: HYPERTENSION
     Dosage: FORM: FILM COATED TABLET. DOSE PER APPLICATION: 1 DF. DAILY DOSE: 1 DF
     Route: 048

REACTIONS (5)
  - Gastrointestinal haemorrhage [Recovered/Resolved]
  - Melaena [Recovered/Resolved]
  - Anaemia [Recovered/Resolved]
  - Drug prescribing error [Recovered/Resolved]
  - Labelled drug-drug interaction medication error [Recovered/Resolved]
